FAERS Safety Report 6843624-4 (Version None)
Quarter: 2010Q3

REPORT INFORMATION
  Report Type: 
  Country: None (occurrence: None)
  Receive Date: 20100715
  Receipt Date: 20100706
  Transmission Date: 20110219
  Serious: Yes (Hospitalization)
  Sender: FDA-Public Use
  Company Number: US-ASTRAZENECA-2010SE31273

PATIENT
  Sex: Female
  Weight: 72.6 kg

DRUGS (3)
  1. SEROQUEL [Suspect]
     Indication: DEPRESSION
     Route: 048
  2. SEROQUEL [Suspect]
     Route: 048
  3. SEROQUEL [Suspect]
     Route: 048

REACTIONS (7)
  - ANXIETY [None]
  - COLON OPERATION [None]
  - DEPRESSION [None]
  - DIVERTICULITIS [None]
  - EATING DISORDER [None]
  - MALAISE [None]
  - WEIGHT INCREASED [None]
